FAERS Safety Report 5306952-X (Version None)
Quarter: 2007Q3

REPORT INFORMATION
  Report Type: 
  Country: None (occurrence: None)
  Receive Date: 20070419
  Receipt Date: 20070406
  Transmission Date: 20080115
  Serious: No
  Sender: FDA-Public Use
  Company Number: 012294

PATIENT
  Age: 23 Year
  Sex: Female
  Weight: 52.2 kg

DRUGS (4)
  1. MIRCETTE [Suspect]
     Indication: ORAL CONTRACEPTION
     Dosage: 1 TABLET, QD, ORAL
     Route: 048
     Dates: start: 20040601
  2. HYDROXYZINE [Concomitant]
  3. AMITRIPTYLINE HCL [Concomitant]
  4. IBUPROFEN [Concomitant]

REACTIONS (6)
  - CYSTITIS INTERSTITIAL [None]
  - DRUG DOSE OMISSION [None]
  - DYSPAREUNIA [None]
  - HERNIA [None]
  - MENSTRUATION DELAYED [None]
  - WITHDRAWAL BLEEDING IRREGULAR [None]
